FAERS Safety Report 23904793 (Version 1)
Quarter: 2024Q2

REPORT INFORMATION
  Report Type: Spontaneous
  Country: US (occurrence: US)
  Receive Date: 20240527
  Receipt Date: 20240527
  Transmission Date: 20240715
  Serious: Yes (Other)
  Sender: FDA-Public Use
  Company Number: US-CELLTRION INC.-2024US012161

PATIENT

DRUGS (14)
  1. TRUXIMA [Suspect]
     Active Substance: RITUXIMAB-ABBS
     Indication: Anti-neutrophil cytoplasmic antibody positive vasculitis
     Dosage: UNK
  2. SYNTHROID [Concomitant]
     Active Substance: LEVOTHYROXINE SODIUM
  3. LEVOTHROID [Concomitant]
     Active Substance: LEVOTHYROXINE SODIUM
  4. TAVNEOS [Concomitant]
     Active Substance: AVACOPAN
  5. COZAAR [Concomitant]
     Active Substance: LOSARTAN POTASSIUM
  6. PROVENTIL [Concomitant]
     Active Substance: ALBUTEROL
  7. MICROZIDE [GLICLAZIDE] [Concomitant]
  8. OXYGEN [Concomitant]
     Active Substance: OXYGEN
  9. SODIUM BICARBONATE [Concomitant]
     Active Substance: SODIUM BICARBONATE
  10. TUMS [Concomitant]
     Active Substance: CALCIUM CARBONATE
  11. CULTURELLE [Concomitant]
     Active Substance: LACTOBACILLUS RHAMNOSUS
  12. COENZYME Q10 [Concomitant]
     Active Substance: DIETARY SUPPLEMENT\UBIDECARENONE
  13. CLARITIN [Concomitant]
     Active Substance: LORATADINE
  14. NORVASC [Concomitant]
     Active Substance: AMLODIPINE BESYLATE

REACTIONS (8)
  - Granulomatosis with polyangiitis [Unknown]
  - Renal vasculitis [Unknown]
  - Chronic kidney disease [Unknown]
  - Proteinuria [Unknown]
  - Aortic disorder [Unknown]
  - Monoclonal antibody chemoimmunoconjugate therapy [Unknown]
  - Steroid therapy [Unknown]
  - Anaemia [Unknown]
